FAERS Safety Report 23067326 (Version 2)
Quarter: 2023Q4

REPORT INFORMATION
  Report Type: Report from Study
  Country: PT (occurrence: PT)
  Receive Date: 20231016
  Receipt Date: 20231115
  Transmission Date: 20240110
  Serious: Yes (Hospitalization, Other)
  Sender: FDA-Public Use
  Company Number: Merck Healthcare KGaA-2023480109

PATIENT
  Age: 40 Year
  Sex: Male

DRUGS (1)
  1. REBIF [Suspect]
     Active Substance: INTERFERON BETA-1A
     Indication: Multiple sclerosis
     Dosage: CARTRIDGE
     Route: 058
     Dates: start: 20230906

REACTIONS (4)
  - Gastrostomy [Unknown]
  - Respiratory tract infection [Unknown]
  - Intestinal perforation [Unknown]
  - Device dislocation [Unknown]

NARRATIVE: CASE EVENT DATE: 20230929
